FAERS Safety Report 13294398 (Version 2)
Quarter: 2017Q2

REPORT INFORMATION
  Report Type: Spontaneous
  Country: US (occurrence: US)
  Receive Date: 20170303
  Receipt Date: 20170417
  Transmission Date: 20170830
  Serious: No
  Sender: FDA-Public Use
  Company Number: US-PFIZER INC-2017088586

PATIENT
  Age: 65 Year
  Sex: Female

DRUGS (1)
  1. PREMARIN [Suspect]
     Active Substance: ESTROGENS, CONJUGATED
     Indication: MASTECTOMY
     Dosage: 1.25 MG, UNK
     Route: 048
     Dates: start: 1972

REACTIONS (2)
  - Intentional product misuse [Unknown]
  - Head titubation [Recovered/Resolved]
